FAERS Safety Report 5729032-8 (Version None)
Quarter: 2008Q2

REPORT INFORMATION
  Report Type: 
  Country: None (occurrence: None)
  Receive Date: 20080506
  Receipt Date: 20080422
  Transmission Date: 20081010
  Serious: Yes (Other)
  Sender: FDA-Public Use
  Company Number: PHBS2008IT04262

PATIENT
  Age: 62 Year
  Sex: Female

DRUGS (1)
  1. IMATINIB [Suspect]
     Indication: CHRONIC MYELOID LEUKAEMIA
     Dosage: 800 MG/D
     Route: 065

REACTIONS (2)
  - CONJUNCTIVAL HAEMORRHAGE [None]
  - CORNEAL BLEEDING [None]
